FAERS Safety Report 6569333-7 (Version None)
Quarter: 2010Q1

REPORT INFORMATION
  Report Type: 
  Country: None (occurrence: None)
  Receive Date: 20100129
  Receipt Date: 20100115
  Transmission Date: 20100710
  Serious: Yes (Hospitalization)
  Sender: FDA-Public Use
  Company Number: 005382

PATIENT
  Sex: Female
  Weight: 75.9 kg

DRUGS (1)
  1. CERTOLIZUMAB PEGOL [Suspect]
     Indication: RHEUMATOID ARTHRITIS
     Dosage: (SUBCUTANEOUS)
     Route: 058
     Dates: start: 20090826, end: 20091007

REACTIONS (4)
  - BLOOD LACTIC ACID INCREASED [None]
  - CELLULITIS [None]
  - EAR LOBE INFECTION [None]
  - INFLUENZA [None]
